FAERS Safety Report 9404356 (Version 1)
Quarter: 2013Q3

REPORT INFORMATION
  Report Type: Spontaneous
  Country: US (occurrence: US)
  Receive Date: 20130717
  Receipt Date: 20130717
  Transmission Date: 20140515
  Serious: No
  Sender: FDA-Public Use
  Company Number: US-BAYER-2013-086318

PATIENT
  Age: 67 Year
  Sex: Female

DRUGS (4)
  1. ALEVE GELCAPS [Suspect]
     Indication: ANALGESIC THERAPY
     Dosage: 1 DF, BID
     Route: 048
     Dates: start: 201306
  2. ALEVE GELCAPS [Suspect]
     Indication: ANALGESIC THERAPY
  3. CRESTOR [Concomitant]
  4. DIOVAN [Concomitant]

REACTIONS (2)
  - Drug ineffective [None]
  - Incorrect drug administration duration [None]
